FAERS Safety Report 9140041 (Version 2)
Quarter: 2013Q2

REPORT INFORMATION
  Report Type: Spontaneous
  Country: IN (occurrence: IN)
  Receive Date: 20130305
  Receipt Date: 20130626
  Transmission Date: 20140414
  Serious: Yes (Other)
  Sender: FDA-Public Use
  Company Number: PHHY2013IN020026

PATIENT
  Age: 17 Year
  Sex: Male

DRUGS (3)
  1. ATOMOXETINE [Suspect]
     Indication: COGNITIVE DISORDER
     Dosage: 10 MG, UNK
  2. OLANZAPINE [Concomitant]
     Dosage: 10 MG, DAY
  3. OLANZAPINE [Concomitant]
     Dosage: 7.5 MG, UNK

REACTIONS (2)
  - Tic [Recovered/Resolved]
  - Dysphonia [Recovered/Resolved]
